FAERS Safety Report 6746775-8 (Version None)
Quarter: 2010Q2

REPORT INFORMATION
  Report Type: 
  Country: None (occurrence: None)
  Receive Date: 20100528
  Receipt Date: 20090930
  Transmission Date: 20101027
  Serious: No
  Sender: FDA-Public Use
  Company Number: A0809745A

PATIENT
  Age: 61 Year
  Sex: Female

DRUGS (1)
  1. VENTOLIN [Suspect]
     Dosage: 1PUFF AS REQUIRED
     Route: 055
     Dates: start: 20090701

REACTIONS (2)
  - DYSPHONIA [None]
  - THROAT IRRITATION [None]
